FAERS Safety Report 9155550 (Version 1)
Quarter: 2013Q1

REPORT INFORMATION
  Report Type: Spontaneous
  Country: US (occurrence: US)
  Receive Date: 20130311
  Receipt Date: 20130311
  Transmission Date: 20140127
  Serious: Yes (Death, Hospitalization)
  Sender: FDA-Public Use
  Company Number: US-ASTRAZENECA-2013SE15407

PATIENT
  Age: 71 Year
  Sex: Male

DRUGS (11)
  1. BRILINTA [Suspect]
     Indication: ACUTE CORONARY SYNDROME
     Route: 048
     Dates: start: 20120121, end: 20130221
  2. OMEPRAZOLE [Suspect]
     Route: 048
     Dates: start: 20130221, end: 20130303
  3. ASPIRIN [Suspect]
     Dosage: 81 MG
  4. INDOMETHACIN [Suspect]
     Indication: GOUT
     Dosage: 25 MG THREE TIMES DAILY AS REQUIRED
     Dates: end: 20130221
  5. ALLOPURINOL [Concomitant]
     Dosage: 300MG
  6. GABAPENTIN [Concomitant]
  7. NOVALOG [Concomitant]
     Dosage: 100 UNITS
     Route: 058
  8. LEVEMIR [Concomitant]
  9. SIMVASTATIN [Concomitant]
  10. AMLODIPINE [Concomitant]
  11. METOPROLOL TARTRATE [Concomitant]

REACTIONS (3)
  - Myocardial infarction [Fatal]
  - Upper gastrointestinal haemorrhage [Unknown]
  - Gout [Unknown]
